FAERS Safety Report 12694240 (Version 1)
Quarter: 2016Q3

REPORT INFORMATION
  Report Type: Spontaneous
  Country: US (occurrence: US)
  Receive Date: 20160829
  Receipt Date: 20160829
  Transmission Date: 20161109
  Serious: No
  Sender: FDA-Public Use
  Company Number: US-PFIZER INC-2016404266

PATIENT
  Sex: Female

DRUGS (1)
  1. LYRICA [Suspect]
     Active Substance: PREGABALIN
     Dosage: UNK

REACTIONS (16)
  - Myofascial pain syndrome [Unknown]
  - Bursitis [Unknown]
  - Feeling of despair [Unknown]
  - Restlessness [Unknown]
  - Migraine [Unknown]
  - Weight increased [Unknown]
  - Anxiety [Unknown]
  - Withdrawal syndrome [Unknown]
  - Cold sweat [Unknown]
  - Nausea [Unknown]
  - Fibromyalgia [Unknown]
  - Drug ineffective [Unknown]
  - Hyperhidrosis [Unknown]
  - Feeling abnormal [Unknown]
  - Arthritis [Unknown]
  - Paraesthesia [Unknown]
